FAERS Safety Report 17116333 (Version 1)
Quarter: 2019Q4

REPORT INFORMATION
  Report Type: Spontaneous
  Country: US (occurrence: US)
  Receive Date: 20191205
  Receipt Date: 20191205
  Transmission Date: 20200122
  Serious: Yes (Other)
  Sender: FDA-Public Use
  Company Number: US-OXURION NV-US-O18021-19-001768

PATIENT

DRUGS (1)
  1. JETREA [Suspect]
     Active Substance: OCRIPLASMIN
     Indication: MACULAR HOLE
     Dosage: 0.125 MILLIGRAM, SINGLE
     Route: 031
     Dates: start: 2017, end: 2017

REACTIONS (4)
  - Macular hole [Unknown]
  - Disease recurrence [Unknown]
  - Visual acuity reduced [Unknown]
  - Off label use [Unknown]
